FAERS Safety Report 6216191-6 (Version None)
Quarter: 2009Q2

REPORT INFORMATION
  Report Type: 
  Country: None (occurrence: None)
  Receive Date: 20090603
  Receipt Date: 20090603
  Transmission Date: 20091009
  Serious: Yes (Hospitalization)
  Sender: FDA-Public Use
  Company Number: None

PATIENT
  Age: 49 Year
  Sex: Male
  Weight: 111.9 kg

DRUGS (1)
  1. VENLAFAXINE HYDROCHLORIDE [Suspect]
     Indication: BIPOLAR I DISORDER
     Dosage: 75MG AM PO
     Route: 048
     Dates: end: 20090224

REACTIONS (5)
  - AGITATION [None]
  - HOMICIDAL IDEATION [None]
  - RESTLESSNESS [None]
  - SUICIDAL IDEATION [None]
  - TACHYPHRENIA [None]
